FAERS Safety Report 8518132-5 (Version None)
Quarter: 2012Q3

REPORT INFORMATION
  Report Type: 
  Country: None (occurrence: None)
  Receive Date: 20120718
  Receipt Date: 20120711
  Transmission Date: 20120928
  Serious: Yes (Other)
  Sender: FDA-Public Use
  Company Number: US-RB-042309-12

PATIENT
  Sex: Female

DRUGS (2)
  1. XANAX [Concomitant]
     Indication: ANXIETY DISORDER
     Route: 065
  2. SUBOXONE [Suspect]
     Indication: DRUG DEPENDENCE
     Dosage: 4-6 MG DAILY
     Route: 060
     Dates: start: 20110301, end: 20110701

REACTIONS (4)
  - MATERNAL EXPOSURE DURING PREGNANCY [None]
  - ABORTION SPONTANEOUS [None]
  - WRONG TECHNIQUE IN DRUG USAGE PROCESS [None]
  - PREGNANCY [None]
